FAERS Safety Report 5073771-1 (Version None)
Quarter: 2006Q3

REPORT INFORMATION
  Report Type: 
  Country: None (occurrence: None)
  Receive Date: 20060808
  Receipt Date: 20060331
  Transmission Date: 20061208
  Serious: Yes (Other)
  Sender: FDA-Public Use
  Company Number: PHEH2006US04311

PATIENT
  Age: 78 Year
  Sex: Female

DRUGS (6)
  1. ZOMETA [Suspect]
     Indication: BREAST CANCER METASTATIC
     Dosage: 4 MG, MONTHLY
     Dates: start: 20021014, end: 20050726
  2. CYTOXAN [Concomitant]
     Indication: BREAST CANCER METASTATIC
     Dosage: 840MG UNK
     Route: 042
  3. FLUOROURACIL [Concomitant]
     Dosage: 840MG UNK
     Route: 042
     Dates: start: 20021014, end: 20030130
  4. ANZEMET [Concomitant]
     Dosage: 100MG UNK
     Route: 042
  5. DECADRON                                /CAN/ [Concomitant]
     Dosage: 20MG UNK
     Route: 042
     Dates: start: 20021014, end: 20030130
  6. AREDIA [Suspect]
     Dosage: 30MG QMO
     Route: 042
     Dates: start: 20050830, end: 20050926

REACTIONS (14)
  - ABSCESS [None]
  - BONE DISORDER [None]
  - EXTRASKELETAL OSSIFICATION [None]
  - FISTULA [None]
  - GINGIVAL INFECTION [None]
  - GINGIVAL SWELLING [None]
  - GINGIVITIS [None]
  - OSTEOMYELITIS [None]
  - OSTEONECROSIS [None]
  - PAIN [None]
  - SKIN LESION [None]
  - SKIN NODULE [None]
  - SOFT TISSUE INFECTION [None]
  - TOOTH LOSS [None]
